FAERS Safety Report 7795390-6 (Version None)
Quarter: 2011Q3

REPORT INFORMATION
  Report Type: 
  Country: None (occurrence: None)
  Receive Date: 20110930
  Receipt Date: 20110913
  Transmission Date: 20111222
  Serious: Yes (Hospitalization, Other)
  Sender: FDA-Public Use
  Company Number: JPI-P-010922

PATIENT
  Age: 57 Year
  Sex: Female
  Weight: 90.7194 kg

DRUGS (10)
  1. BLOOD PRESSURE MEDICATION [Concomitant]
  2. ENOXAPARIN SODIUM [Suspect]
     Indication: COAGULOPATHY
  3. XYREM [Suspect]
     Indication: CATAPLEXY
     Dosage: 4.5 GM (2.25 GM, 2 IN 1 D), ORAL, 9 GM (4.5 GM, 2 IN 1 D),ORAL,
     Route: 048
     Dates: start: 20060611, end: 20060801
  4. XYREM [Suspect]
     Indication: INSOMNIA
     Dosage: 4.5 GM (2.25 GM, 2 IN 1 D), ORAL, 9 GM (4.5 GM, 2 IN 1 D),ORAL,
     Route: 048
     Dates: start: 20060611, end: 20060801
  5. XYREM [Suspect]
     Indication: SOMNOLENCE
     Dosage: 4.5 GM (2.25 GM, 2 IN 1 D), ORAL, 9 GM (4.5 GM, 2 IN 1 D),ORAL,
     Route: 048
     Dates: start: 20060611, end: 20060801
  6. XYREM [Suspect]
     Indication: CATAPLEXY
     Dosage: 4.5 GM (2.25 GM, 2 IN 1 D), ORAL, 9 GM (4.5 GM, 2 IN 1 D),ORAL,
     Route: 048
     Dates: start: 20060801
  7. XYREM [Suspect]
     Indication: INSOMNIA
     Dosage: 4.5 GM (2.25 GM, 2 IN 1 D), ORAL, 9 GM (4.5 GM, 2 IN 1 D),ORAL,
     Route: 048
     Dates: start: 20060801
  8. XYREM [Suspect]
     Indication: SOMNOLENCE
     Dosage: 4.5 GM (2.25 GM, 2 IN 1 D), ORAL, 9 GM (4.5 GM, 2 IN 1 D),ORAL,
     Route: 048
     Dates: start: 20060801
  9. WARFARIN SODIUM [Suspect]
     Indication: COAGULOPATHY
  10. VENLAFAXINE HYDROCHLORIDE [Concomitant]

REACTIONS (11)
  - PULMONARY EMBOLISM [None]
  - HEPATITIS [None]
  - FIBULA FRACTURE [None]
  - CELLULITIS [None]
  - INTERNATIONAL NORMALISED RATIO DECREASED [None]
  - INTERNATIONAL NORMALISED RATIO INCREASED [None]
  - LOWER LIMB FRACTURE [None]
  - COAGULATION FACTOR V LEVEL ABNORMAL [None]
  - HYPOTENSION [None]
  - FALL [None]
  - DIABETES MELLITUS [None]
